FAERS Safety Report 9382531 (Version 2)
Quarter: 2013Q3

REPORT INFORMATION
  Report Type: Spontaneous
  Country: FR (occurrence: FR)
  Receive Date: 20130703
  Receipt Date: 20130813
  Transmission Date: 20140515
  Serious: Yes (Hospitalization)
  Sender: FDA-Public Use
  Company Number: PHHY2013FR066695

PATIENT
  Age: 48 Year
  Sex: Male

DRUGS (23)
  1. KETAMINE [Suspect]
     Dosage: UNK UKN, UNK
     Route: 048
     Dates: end: 20120727
  2. VERSATIS [Suspect]
     Dosage: UNK UKN, UNK
     Route: 062
     Dates: end: 20120727
  3. MYOLASTAN [Concomitant]
     Dosage: UNK UKN, UNK
     Dates: start: 2011
  4. VOLTARENE LP [Suspect]
     Dosage: 1 DF, BID
     Route: 048
     Dates: start: 20120626, end: 20120713
  5. VOLTARENE [Suspect]
     Dosage: UNK
     Dates: start: 2011
  6. PARACETAMOL [Suspect]
     Dosage: UNK UKN, UNK
     Dates: start: 2011
  7. PARACETAMOL [Suspect]
     Dosage: 4 G, QD
     Route: 048
     Dates: start: 20120628, end: 20120713
  8. TRAMADOL [Suspect]
     Dosage: 150 MG, BID
     Route: 048
     Dates: start: 20120711, end: 20120713
  9. DOMPERIDONE [Suspect]
     Dosage: UNK UKN, UNK
     Route: 048
     Dates: end: 20120727
  10. AUGMENTIN [Suspect]
     Dosage: 1 G, TID
     Route: 048
     Dates: start: 20120607, end: 20120713
  11. MIOREL [Suspect]
     Dosage: UNK UKN, UNK
     Route: 048
     Dates: start: 20120628, end: 20120728
  12. INEXIUM [Suspect]
     Dosage: 1 DF, QD
     Route: 048
     Dates: start: 20120707, end: 20120713
  13. SOLUPRED [Suspect]
     Dosage: UNK UKN, UNK
     Route: 048
     Dates: start: 20120707, end: 20120713
  14. LOVENOX [Suspect]
     Dosage: 1 DF, QD
     Route: 058
     Dates: start: 20120713
  15. SKENAN [Suspect]
     Dosage: UNK UKN, UNK
     Dates: start: 2011
  16. SKENAN [Suspect]
     Dosage: 200 MG, BID
     Route: 048
     Dates: start: 20120713, end: 20120727
  17. ACTISKENAN [Suspect]
     Dosage: UNK UKN, UNK
     Dates: start: 2011
  18. ACTISKENAN [Suspect]
     Dosage: 6 DF, QD
     Route: 048
     Dates: start: 20120713, end: 20120727
  19. LYRICA [Suspect]
     Dosage: UNK UKN, UNK
     Dates: start: 2011
  20. LYRICA [Suspect]
     Dosage: 5 MG, BID
     Route: 048
     Dates: end: 20120719
  21. LAROXYL [Suspect]
     Dosage: 5 DF, QD
     Route: 048
     Dates: end: 20120727
  22. NEURONTIN [Suspect]
     Dosage: 500 MG, TID
     Route: 048
     Dates: end: 20120727
  23. AERIUS [Suspect]
     Dosage: 1 DF, QD
     Route: 048
     Dates: end: 20120727

REACTIONS (1)
  - Hepatocellular injury [Recovered/Resolved]
